FAERS Safety Report 10339900 (Version 1)
Quarter: 2014Q3

REPORT INFORMATION
  Report Type: Spontaneous
  Country: FR (occurrence: None)
  Receive Date: 20140722
  Receipt Date: 20140722
  Transmission Date: 20150326
  Serious: Yes (Congenital Anomaly, Other)
  Sender: FDA-Public Use
  Company Number: AUR-APL-2014--07748

PATIENT
  Age: 0 Day
  Sex: Female
  Weight: 3.6 kg

DRUGS (2)
  1. CITALOPRAM [Suspect]
     Active Substance: CITALOPRAM HYDROBROMIDE
     Indication: PRODUCT USED FOR UNKNOWN INDICATION
     Dosage: 20MG (0.5 TABLET)
     Route: 064
     Dates: end: 2014
  2. XANAX [Suspect]
     Active Substance: ALPRAZOLAM
     Indication: PRODUCT USED FOR UNKNOWN INDICATION
     Route: 064
     Dates: end: 2014

REACTIONS (7)
  - Weight increased [None]
  - Cephalo-pelvic disproportion [None]
  - Hypotonia neonatal [None]
  - Maternal exposure during pregnancy [None]
  - Ventricular septal defect [None]
  - Feeding disorder neonatal [None]
  - Macrosomia [None]

NARRATIVE: CASE EVENT DATE: 20140105
